FAERS Safety Report 15477017 (Version 1)
Quarter: 2018Q4

REPORT INFORMATION
  Report Type: Spontaneous
  Country: US (occurrence: US)
  Receive Date: 20181009
  Receipt Date: 20181009
  Transmission Date: 20190205
  Serious: No
  Sender: FDA-Public Use
  Company Number: US-HTU-2015US015396

PATIENT
  Sex: Male

DRUGS (3)
  1. VALCHLOR [Suspect]
     Active Substance: MECHLORETHAMINE
     Indication: MYCOSIS FUNGOIDES
     Dosage: UNK, QD
     Route: 061
     Dates: start: 20150328
  2. CLOBETASOL EMOLLIENT [Concomitant]
     Dosage: UNK
  3. VALCHLOR [Suspect]
     Active Substance: MECHLORETHAMINE
     Dosage: UNK, UNKNOWN
     Route: 061
     Dates: start: 201503

REACTIONS (3)
  - Insomnia [Unknown]
  - Pruritus [Unknown]
  - Skin lesion [Unknown]
